FAERS Safety Report 23347705 (Version 1)
Quarter: 2023Q4

REPORT INFORMATION
  Report Type: Spontaneous
  Country: US (occurrence: US)
  Receive Date: 20231228
  Receipt Date: 20231228
  Transmission Date: 20240109
  Serious: Yes (Hospitalization)
  Sender: FDA-Public Use
  Company Number: US-Fresenius Medical Care Renal Therapies Group-FMC-2312-001334

PATIENT
  Age: 56 Year
  Sex: Female

DRUGS (3)
  1. DELFLEX [Suspect]
     Active Substance: CALCIUM CHLORIDE\DEXTROSE\MAGNESIUM CHLORIDE\SODIUM CHLORIDE\SODIUM LACTATE
     Indication: End stage renal disease
     Dosage: 7 DAYS-A-WEEK, EXCHANGES = 5, FILL VOLUME = 2800 ML, DWELL TIME = 1.75 HOURS, LAST FILL = 2000 ML, D
     Route: 033
  2. DELFLEX WITH DEXTROSE 2.5% LOW MAGNESIUM LOW CALCIUM [Suspect]
     Active Substance: CALCIUM CHLORIDE\DEXTROSE\MAGNESIUM CHLORIDE\SODIUM CHLORIDE\SODIUM LACTATE
     Dosage: 7 DAYS-A-WEEK, EXCHANGES = 5, FILL VOLUME = 2800 ML, DWELL TIME = 1.75 HOURS, LAST FILL = 2000 ML, D
     Route: 033
  3. DELFLEX WITH DEXTROSE 4.25% LOW MAGNESIUM LOW CALCIUM [Suspect]
     Active Substance: CALCIUM CHLORIDE\DEXTROSE\MAGNESIUM CHLORIDE\SODIUM CHLORIDE\SODIUM LACTATE
     Dosage: 7 DAYS-A-WEEK, EXCHANGES = 5, FILL VOLUME = 2800 ML, DWELL TIME = 1.75 HOURS, LAST FILL = 2000 ML, D
     Route: 033

REACTIONS (2)
  - Peritonitis [Recovering/Resolving]
  - Abdominal distension [Recovered/Resolved]
